FAERS Safety Report 23990439 (Version 1)
Quarter: 2024Q2

REPORT INFORMATION
  Report Type: Spontaneous
  Country: US (occurrence: US)
  Receive Date: 20240619
  Receipt Date: 20240619
  Transmission Date: 20240716
  Serious: Yes (Other)
  Sender: FDA-Public Use
  Company Number: US-BRISTOL-MYERS SQUIBB COMPANY-2024-094921

PATIENT
  Age: 69 Year
  Sex: Male
  Weight: 81.65 kg

DRUGS (9)
  1. REVLIMID [Suspect]
     Active Substance: LENALIDOMIDE
     Indication: Plasma cell myeloma
     Dosage: DOSE : UNKNOWN;     FREQ : ONCE A DAY
     Dates: start: 20130118
  2. ACYCLOVIR [Concomitant]
     Active Substance: ACYCLOVIR
  3. POMALIDOMIDE [Concomitant]
     Active Substance: POMALIDOMIDE
  4. ATORVASTATIN [Concomitant]
     Active Substance: ATORVASTATIN
  5. BACTRIM [Concomitant]
     Active Substance: SULFAMETHOXAZOLE\TRIMETHOPRIM
  6. METOPROLOL [Concomitant]
     Active Substance: METOPROLOL
  7. DEXAMETHASONE [Concomitant]
     Active Substance: DEXAMETHASONE
  8. ASPIRIN [Concomitant]
     Active Substance: ASPIRIN
     Route: 042
  9. DARZALEX [Concomitant]
     Active Substance: DARATUMUMAB

REACTIONS (1)
  - Drug ineffective [Unknown]
